FAERS Safety Report 8329016-X (Version None)
Quarter: 2012Q2

REPORT INFORMATION
  Report Type: 
  Country: None (occurrence: None)
  Receive Date: 20120502
  Receipt Date: 20120424
  Transmission Date: 20120825
  Serious: Yes (Hospitalization)
  Sender: FDA-Public Use
  Company Number: NL-B.I. PHARMACEUTICALS,INC./RIDGEFIELD-2012-NL-00177NL

PATIENT
  Sex: Male
  Weight: 96 kg

DRUGS (1)
  1. PRADAXA [Suspect]
     Dosage: 150 MG
     Dates: start: 20120224, end: 20120404

REACTIONS (6)
  - FATIGUE [None]
  - ANAEMIA [None]
  - DECREASED APPETITE [None]
  - PALLOR [None]
  - GASTROINTESTINAL DISORDER [None]
  - FEELING COLD [None]
